FAERS Safety Report 5308539-1 (Version None)
Quarter: 2007Q2

REPORT INFORMATION
  Report Type: 
  Country: None (occurrence: None)
  Receive Date: 20070420
  Receipt Date: 20070408
  Transmission Date: 20071010
  Serious: Yes (Death)
  Sender: FDA-Public Use
  Company Number: 2007S1000101

PATIENT
  Sex: Male

DRUGS (3)
  1. ACITRETIN [Suspect]
     Indication: PSORIASIS
     Dosage: 10 MG; QD; PO
     Route: 048
     Dates: end: 20060828
  2. ACITRETIN [Suspect]
     Indication: PSORIASIS
     Dosage: 10 MG; QD; PO
     Route: 048
  3. METHOTREXATE [Suspect]
     Indication: DRUG USE FOR UNKNOWN INDICATION
     Dates: start: 20061106

REACTIONS (6)
  - APHASIA [None]
  - BALANCE DISORDER [None]
  - DRUG INTERACTION [None]
  - DRUG TOXICITY [None]
  - HEPATITIS [None]
  - LYMPHOMA [None]
